FAERS Safety Report 16077533 (Version 1)
Quarter: 2019Q1

REPORT INFORMATION
  Report Type: Spontaneous
  Country: IT (occurrence: IT)
  Receive Date: 20190315
  Receipt Date: 20190315
  Transmission Date: 20190418
  Serious: Yes (Other)
  Sender: FDA-Public Use
  Company Number: IT-ELI_LILLY_AND_COMPANY-IT201903006713

PATIENT
  Age: 17 Year
  Sex: Female
  Weight: 40 kg

DRUGS (4)
  1. HALOPERIDOL. [Suspect]
     Active Substance: HALOPERIDOL
     Indication: PRODUCT USED FOR UNKNOWN INDICATION
     Dosage: 30 ML, UNKNOWN
     Route: 048
     Dates: start: 20190304, end: 20190304
  2. TEGRETOL [Suspect]
     Active Substance: CARBAMAZEPINE
     Indication: INTENTIONAL SELF-INJURY
     Dosage: 10 DF, UNKNOWN
     Route: 048
     Dates: start: 20190304, end: 20190304
  3. FLUOXETINE HYDROCHLORIDE. [Suspect]
     Active Substance: FLUOXETINE HYDROCHLORIDE
     Indication: INTENTIONAL SELF-INJURY
     Dosage: 30 DF, UNKNOWN
     Route: 048
     Dates: start: 20190304, end: 20190304
  4. OLANZAPINE. [Suspect]
     Active Substance: OLANZAPINE
     Indication: INTENTIONAL SELF-INJURY
     Dosage: 10 DF, UNKNOWN
     Route: 048
     Dates: start: 20190304, end: 20190304

REACTIONS (3)
  - Intentional self-injury [Unknown]
  - Vomiting [Unknown]
  - Intentional overdose [Unknown]

NARRATIVE: CASE EVENT DATE: 20190304
